FAERS Safety Report 13572886 (Version 1)
Quarter: 2017Q2

REPORT INFORMATION
  Report Type: Spontaneous
  Country: US (occurrence: US)
  Receive Date: 20170523
  Receipt Date: 20170523
  Transmission Date: 20170830
  Serious: No
  Sender: FDA-Public Use
  Company Number: US-GLAXOSMITHKLINE-US2017075154

PATIENT
  Age: 56 Year
  Sex: Male

DRUGS (1)
  1. NICORETTE [Suspect]
     Active Substance: NICOTINE
     Indication: TOBACCO USER
     Dosage: 2 MG, UNK (15 PIECES A DAY)

REACTIONS (5)
  - Irritability [Unknown]
  - Eructation [Unknown]
  - Product use in unapproved indication [Unknown]
  - Poor quality sleep [Unknown]
  - Wrong technique in product usage process [Unknown]
